FAERS Safety Report 10583406 (Version 2)
Quarter: 2015Q1

REPORT INFORMATION
  Report Type: Spontaneous
  Country: US (occurrence: US)
  Receive Date: 20141114
  Receipt Date: 20150302
  Transmission Date: 20150720
  Serious: Yes (Other)
  Sender: FDA-Public Use
  Company Number: US-ELI_LILLY_AND_COMPANY-US201411001172

PATIENT
  Sex: Female

DRUGS (6)
  1. VALACICLOVIR [Concomitant]
     Active Substance: VALACYCLOVIR HYDROCHLORIDE
     Dosage: 500 MG, UNK
  2. EFFEXOR [Concomitant]
     Active Substance: VENLAFAXINE HYDROCHLORIDE
  3. AMFETAMINE [Concomitant]
     Active Substance: AMPHETAMINE
     Dosage: 20 MG, QD
  4. CYMBALTA [Suspect]
     Active Substance: DULOXETINE HYDROCHLORIDE
     Indication: DEPRESSION
     Dosage: 30 MG, QD
     Route: 065
     Dates: start: 20070213
  5. CYMBALTA [Suspect]
     Active Substance: DULOXETINE HYDROCHLORIDE
     Dosage: 30 MG, QD
     Route: 065
     Dates: start: 20130208, end: 2013
  6. CYMBALTA [Suspect]
     Active Substance: DULOXETINE HYDROCHLORIDE
     Dosage: 60 MG, QD
     Route: 065
     Dates: start: 2007

REACTIONS (11)
  - Anger [Unknown]
  - Dizziness [Unknown]
  - Exposure during pregnancy [Recovered/Resolved]
  - Drug withdrawal syndrome [Unknown]
  - Mood swings [Unknown]
  - Nausea [Unknown]
  - Feeling abnormal [Unknown]
  - Paraesthesia [Unknown]
  - Dry mouth [Unknown]
  - Depression [Unknown]
  - Drug ineffective [Unknown]

NARRATIVE: CASE EVENT DATE: 2013
